FAERS Safety Report 7330908-9 (Version None)
Quarter: 2011Q1

REPORT INFORMATION
  Report Type: 
  Country: None (occurrence: None)
  Receive Date: 20110225
  Receipt Date: 20110225
  Transmission Date: 20110831
  Serious: Yes (Hospitalization)
  Sender: FDA-Public Use
  Company Number: None

PATIENT
  Sex: Female
  Weight: 102.7 kg

DRUGS (3)
  1. CARBOPLATIN [Suspect]
     Dosage: 760 MG
     Dates: end: 20110203
  2. HERCEPTIN [Suspect]
     Dosage: 630 MG
     Dates: end: 20110210
  3. TAXOTERE [Suspect]
     Dosage: 160 MG
     Dates: end: 20110203

REACTIONS (3)
  - HAEMORRHAGE [None]
  - THROMBOCYTOPENIA [None]
  - ANAEMIA [None]
